FAERS Safety Report 9487102 (Version 1)
Quarter: 2013Q3

REPORT INFORMATION
  Report Type: Spontaneous
  Country: GB (occurrence: GB)
  Receive Date: 20130829
  Receipt Date: 20130829
  Transmission Date: 20140515
  Serious: Yes (Other)
  Sender: FDA-Public Use
  Company Number: GB-TEVA-428127ISR

PATIENT
  Age: 87 Year
  Sex: Male
  Weight: 93.9 kg

DRUGS (8)
  1. METHOTREXATE [Suspect]
     Dates: start: 20130809
  2. CO-CODAMOL [Concomitant]
     Dates: start: 20130417, end: 20130729
  3. QUININE [Concomitant]
     Dates: start: 20130417, end: 20130515
  4. RAMIPRIL [Concomitant]
     Dates: start: 20130417, end: 20130515
  5. AMITRIPTYLINE HYDROCHLORIDE [Concomitant]
     Dates: start: 20130422, end: 20130520
  6. ACCRETE D3 [Concomitant]
     Dates: start: 20130502, end: 20130530
  7. PREDNISOLONE [Concomitant]
     Dates: start: 20130502, end: 20130510
  8. DOXYCYCLINE [Concomitant]
     Dates: start: 20130521, end: 20130528

REACTIONS (1)
  - Alveolitis [Recovering/Resolving]
